FAERS Safety Report 11850552 (Version 1)
Quarter: 2015Q4

REPORT INFORMATION
  Report Type: Spontaneous
  Country: US (occurrence: US)
  Receive Date: 20151218
  Receipt Date: 20151218
  Transmission Date: 20160305
  Serious: No
  Sender: FDA-Public Use
  Company Number: US-JNJFOC-20151117022

PATIENT
  Age: 77 Year
  Sex: Male

DRUGS (3)
  1. CONTRAST MEDIA [Concomitant]
     Active Substance: UNSPECIFIED INGREDIENT
     Dates: start: 20151109
  2. TYLENOL REGULAR STRENGTH [Suspect]
     Active Substance: ACETAMINOPHEN
     Indication: BACK PAIN
     Route: 048
     Dates: start: 20151110
  3. HYDROCODONE BITARTRATE AND ACETAMINOPHEN [Suspect]
     Active Substance: ACETAMINOPHEN\HYDROCODONE BITARTRATE
     Indication: BACK PAIN
     Dosage: ^325^ EVERY 6HORUS AS NEED
     Route: 065
     Dates: start: 20151109

REACTIONS (3)
  - Product use issue [Not Recovered/Not Resolved]
  - Rash generalised [Not Recovered/Not Resolved]
  - Off label use [Not Recovered/Not Resolved]

NARRATIVE: CASE EVENT DATE: 20151114
